FAERS Safety Report 11120234 (Version 1)
Quarter: 2015Q2

REPORT INFORMATION
  Report Type: Spontaneous
  Country: FR (occurrence: FR)
  Receive Date: 20150518
  Receipt Date: 20150518
  Transmission Date: 20150821
  Serious: Yes (Hospitalization)
  Sender: FDA-Public Use
  Company Number: FR-B.I. PHARMACEUTICALS,INC./RIDGEFIELD-2015-BI-25689FF

PATIENT
  Age: 66 Year
  Sex: Male

DRUGS (3)
  1. CIALIS [Concomitant]
     Active Substance: TADALAFIL
     Indication: PRODUCT USED FOR UNKNOWN INDICATION
     Route: 065
  2. MECIR [Suspect]
     Active Substance: TAMSULOSIN HYDROCHLORIDE
     Indication: PRODUCT USED FOR UNKNOWN INDICATION
     Route: 065
  3. CIALIS [Concomitant]
     Active Substance: TADALAFIL
     Dosage: 5 MG
     Route: 065

REACTIONS (6)
  - Drug ineffective [Unknown]
  - Bladder dilatation [Recovered/Resolved]
  - Sperm concentration zero [Recovered/Resolved]
  - Urethral stenosis [Recovered/Resolved]
  - Kidney infection [Recovered/Resolved]
  - Adenoma benign [Recovered/Resolved]
